FAERS Safety Report 5084018-4 (Version None)
Quarter: 2006Q3

REPORT INFORMATION
  Report Type: 
  Country: None (occurrence: None)
  Receive Date: 20060816
  Receipt Date: 20060803
  Transmission Date: 20061208
  Serious: Yes (Hospitalization)
  Sender: FDA-Public Use
  Company Number: 2006US001675

PATIENT
  Age: 39 Year
  Sex: Female
  Weight: 68 kg

DRUGS (10)
  1. PROGRAF [Suspect]
     Indication: PROPHYLAXIS AGAINST TRANSPLANT REJECTION
     Dosage: 4 MG, BID, ORAL
     Route: 048
     Dates: start: 20060108
  2. PROGRAF [Suspect]
     Indication: PROPHYLAXIS AGAINST TRANSPLANT REJECTION
     Dosage: 4 MG, BID, ORAL
     Route: 048
     Dates: start: 20060427
  3. CELLCEPT (MOCOPHENOLATE MOFETIL) [Concomitant]
  4. BACTRIM (TRIMETHOPRIM) [Concomitant]
  5. LABETALOL HCL [Concomitant]
  6. PRILOSEC [Concomitant]
  7. ADVAIR DISKUS 100/50 [Concomitant]
  8. MAGNESIUM OXIDE (MAGNESIUM OXIDE) [Concomitant]
  9. SODIUM BICARBONATE IN PLASTIC CONTAINER [Concomitant]
  10. LOTENSIN [Concomitant]

REACTIONS (3)
  - BACTERIAL PYELONEPHRITIS [None]
  - ESCHERICHIA INFECTION [None]
  - KIDNEY TRANSPLANT REJECTION [None]
